FAERS Safety Report 7445215-3 (Version None)
Quarter: 2011Q2

REPORT INFORMATION
  Report Type: 
  Country: None (occurrence: None)
  Receive Date: 20110429
  Receipt Date: 20110420
  Transmission Date: 20111010
  Serious: Yes (Hospitalization)
  Sender: FDA-Public Use
  Company Number: FR-SANOFI-AVENTIS-2011SA024590

PATIENT
  Age: 72 Year
  Sex: Male
  Weight: 81 kg

DRUGS (6)
  1. FLECAINE [Concomitant]
     Indication: CARDIOMYOPATHY
     Route: 065
  2. KARDEGIC [Concomitant]
     Indication: THROMBOSIS PROPHYLAXIS
     Route: 048
     Dates: start: 20060101
  3. LORAZEPAM [Concomitant]
     Indication: INSOMNIA
     Route: 048
     Dates: start: 20101001
  4. COTAREG ^NOVARTIS^ [Concomitant]
     Route: 048
     Dates: start: 20060101
  5. CRESTOR [Concomitant]
     Route: 048
     Dates: start: 20060101
  6. MULTAQ [Suspect]
     Indication: CARDIOMYOPATHY
     Route: 048
     Dates: start: 20110215, end: 20110222

REACTIONS (3)
  - TOXIC SKIN ERUPTION [None]
  - PYREXIA [None]
  - RASH MACULO-PAPULAR [None]
